FAERS Safety Report 6239242-1 (Version None)
Quarter: 2009Q2

REPORT INFORMATION
  Report Type: 
  Country: None (occurrence: None)
  Receive Date: 20090622
  Receipt Date: 20090611
  Transmission Date: 20091009
  Serious: Yes (Other)
  Sender: FDA-Public Use
  Company Number: US-JNJFOC-20090401944

PATIENT
  Sex: Female
  Weight: 43.09 kg

DRUGS (9)
  1. TYLENOL (CAPLET) [Suspect]
     Route: 048
  2. TYLENOL (CAPLET) [Suspect]
     Indication: PAIN
     Route: 048
  3. BRONCHODILATOR [Concomitant]
     Indication: CHRONIC OBSTRUCTIVE PULMONARY DISEASE
  4. DILTIAZEM [Concomitant]
     Indication: CARDIAC DISORDER
  5. ATIVAN [Concomitant]
  6. SYNTHROID [Concomitant]
  7. PREDNISONE [Concomitant]
  8. BYSTOLIC [Concomitant]
  9. ASPIRIN [Concomitant]

REACTIONS (2)
  - DYSPNOEA [None]
  - FOREIGN BODY TRAUMA [None]
